FAERS Safety Report 8167579-8 (Version None)
Quarter: 2012Q1

REPORT INFORMATION
  Report Type: 
  Country: None (occurrence: None)
  Receive Date: 20120222
  Receipt Date: 20120209
  Transmission Date: 20120608
  Serious: Yes (Other)
  Sender: FDA-Public Use
  Company Number: 2012-0809

PATIENT
  Age: 52 Year
  Sex: Female

DRUGS (1)
  1. SOMATULINE DEPOT [Suspect]
     Indication: ACROMEGALY
     Dosage: 90 MG (90 MG, 1 IN 28 D), SUBCUTANEOUS
     Route: 058
     Dates: start: 20111203

REACTIONS (8)
  - CONDITION AGGRAVATED [None]
  - PAIN IN EXTREMITY [None]
  - DRUG INEFFECTIVE [None]
  - JOINT SWELLING [None]
  - ACROMEGALY [None]
  - HYPERHIDROSIS [None]
  - PITUITARY TUMOUR RECURRENT [None]
  - OEDEMA PERIPHERAL [None]
